FAERS Safety Report 7300137-3 (Version None)
Quarter: 2011Q1

REPORT INFORMATION
  Report Type: 
  Country: None (occurrence: None)
  Receive Date: 20110217
  Receipt Date: 20110209
  Transmission Date: 20110831
  Serious: Yes (Death, Hospitalization, Other)
  Sender: FDA-Public Use
  Company Number: US-BIOGENIDEC-2011BI001500

PATIENT
  Age: 54 Year
  Sex: Female

DRUGS (9)
  1. CYANOCOBALAMIN [Concomitant]
     Route: 030
  2. FLUOXETINE [Concomitant]
     Route: 048
  3. AMANTADINE HCL [Concomitant]
     Route: 048
  4. ATOMEXETINE [Concomitant]
     Route: 048
  5. OXYBUTYNIN [Concomitant]
     Indication: URINARY RETENTION
     Route: 048
  6. TYSABRI [Suspect]
     Indication: MULTIPLE SCLEROSIS
     Route: 042
     Dates: start: 20081219, end: 20101006
  7. BACLOFEN [Concomitant]
     Route: 048
  8. GABAPENTIN [Concomitant]
  9. LEVOTHYROXINE SODIUM [Concomitant]
     Indication: HYPOTHYROIDISM
     Route: 048

REACTIONS (3)
  - CYSTITIS [None]
  - MULTIPLE SCLEROSIS RELAPSE [None]
  - PROGRESSIVE MULTIFOCAL LEUKOENCEPHALOPATHY [None]
